FAERS Safety Report 10578964 (Version 2)
Quarter: 2014Q4

REPORT INFORMATION
  Report Type: Spontaneous
  Country: CN (occurrence: CN)
  Receive Date: 20141112
  Receipt Date: 20141215
  Transmission Date: 20150529
  Serious: Yes (Other)
  Sender: FDA-Public Use
  Company Number: CN-BAYER-2014-162877

PATIENT
  Age: 39 Year
  Sex: Male

DRUGS (2)
  1. NEXAVAR [Suspect]
     Active Substance: SORAFENIB
     Indication: HEPATOCELLULAR CARCINOMA
     Dosage: 400 MG, BID
     Route: 048
     Dates: start: 201112
  2. NEXAVAR [Suspect]
     Active Substance: SORAFENIB
     Indication: HEPATOCELLULAR CARCINOMA
     Dosage: 200 MG, BID
     Route: 048
     Dates: start: 20141115

REACTIONS (7)
  - International normalised ratio increased [None]
  - Chest discomfort [Recovered/Resolved]
  - Pericarditis tuberculous [None]
  - Pericardial effusion [Recovered/Resolved]
  - Prothrombin time prolonged [None]
  - Activated partial thromboplastin time prolonged [None]
  - Pyrexia [Recovered/Resolved]

NARRATIVE: CASE EVENT DATE: 20141020
